FAERS Safety Report 14322040 (Version 5)
Quarter: 2018Q3

REPORT INFORMATION
  Report Type: Spontaneous
  Country: US (occurrence: US)
  Receive Date: 20171225
  Receipt Date: 20180817
  Transmission Date: 20181010
  Serious: Yes (Other)
  Sender: FDA-Public Use
  Company Number: US-ABBVIE-17P-163-2194371-00

PATIENT
  Age: 80 Year
  Sex: Female

DRUGS (8)
  1. SYNTHROID [Suspect]
     Active Substance: LEVOTHYROXINE SODIUM
     Route: 048
     Dates: start: 201706
  2. DIFFLUCON [Concomitant]
     Indication: PRODUCT USED FOR UNKNOWN INDICATION
     Route: 065
     Dates: start: 20170918
  3. CITALOPRAM [Concomitant]
     Active Substance: CITALOPRAM HYDROBROMIDE
     Indication: PRODUCT USED FOR UNKNOWN INDICATION
     Route: 065
     Dates: start: 20171006
  4. SYNTHROID [Suspect]
     Active Substance: LEVOTHYROXINE SODIUM
     Indication: PRODUCT USED FOR UNKNOWN INDICATION
     Route: 048
     Dates: start: 20081107, end: 20090305
  5. TESSALON [Concomitant]
     Active Substance: BENZONATATE
     Indication: COUGH
     Route: 065
     Dates: start: 20170612
  6. MAVIK [Suspect]
     Active Substance: TRANDOLAPRIL
     Indication: PRODUCT USED FOR UNKNOWN INDICATION
     Route: 048
  7. SYNTHROID [Suspect]
     Active Substance: LEVOTHYROXINE SODIUM
     Route: 048
     Dates: start: 20090601
  8. FLU VACCINE [Concomitant]
     Active Substance: INFLUENZA VIRUS VACCINE
     Indication: PRODUCT USED FOR UNKNOWN INDICATION
     Route: 065
     Dates: start: 20170928

REACTIONS (60)
  - Abdominal pain [Unknown]
  - Snoring [Recovered/Resolved]
  - Respiratory disorder [Recovered/Resolved]
  - Chest pain [Recovered/Resolved]
  - Actinic keratosis [Unknown]
  - Ligament disorder [Unknown]
  - Haematochezia [Unknown]
  - Postmenopausal haemorrhage [Unknown]
  - Skin papilloma [Unknown]
  - Anorectal disorder [Recovered/Resolved]
  - Vaginal discharge [Unknown]
  - Cough [Recovered/Resolved]
  - Road traffic accident [Unknown]
  - Osteoarthritis [Unknown]
  - Duodenitis [Unknown]
  - Gastrooesophageal reflux disease [Recovering/Resolving]
  - Radiculitis brachial [Unknown]
  - Nocturnal dyspnoea [Unknown]
  - Middle insomnia [Unknown]
  - Paraesthesia [Unknown]
  - Muscle disorder [Unknown]
  - Vertigo CNS origin [Recovered/Resolved]
  - Helicobacter infection [Recovering/Resolving]
  - Skin lesion [Unknown]
  - Enthesopathy [Recovering/Resolving]
  - Peptic ulcer [Unknown]
  - Cerumen impaction [Unknown]
  - Rash pruritic [Unknown]
  - Dysuria [Unknown]
  - Arthralgia [Unknown]
  - Arthralgia [Not Recovered/Not Resolved]
  - Cervical radiculopathy [Unknown]
  - Dermal cyst [Unknown]
  - Acute sinusitis [Unknown]
  - Leukocytosis [Unknown]
  - Pelvic pain [Unknown]
  - Pollakiuria [Unknown]
  - Night sweats [Unknown]
  - Dyspnoea exertional [Unknown]
  - Gravitational oedema [Unknown]
  - Depressed mood [Unknown]
  - Meniscus injury [Unknown]
  - Animal bite [Unknown]
  - Abdominal pain [Unknown]
  - Flatulence [Unknown]
  - Chills [Unknown]
  - Weight decreased [Unknown]
  - Dyspnoea [Recovered/Resolved]
  - Hypoaesthesia [Unknown]
  - Increased tendency to bruise [Unknown]
  - Connective tissue disorder [Unknown]
  - Cataract [Unknown]
  - Skin disorder [Unknown]
  - Radiculopathy [Unknown]
  - Palpitations [Unknown]
  - Bursitis [Recovering/Resolving]
  - Dry mouth [Unknown]
  - Nystagmus [Unknown]
  - Gastritis [Unknown]
  - Candida infection [Unknown]

NARRATIVE: CASE EVENT DATE: 2009
